FAERS Safety Report 12398135 (Version 3)
Quarter: 2017Q1

REPORT INFORMATION
  Report Type: Spontaneous
  Country: PT (occurrence: PT)
  Receive Date: 20160524
  Receipt Date: 20170209
  Transmission Date: 20170428
  Serious: Yes (Other)
  Sender: FDA-Public Use
  Company Number: PHHY2016PT067651

PATIENT
  Age: 61 Year
  Sex: Female
  Weight: 80 kg

DRUGS (4)
  1. RELMUS [Concomitant]
     Active Substance: THIOCOLCHICOSIDE
     Dosage: POSOLOGIA: 1 AMPOLA/DIA.
     Route: 030
     Dates: start: 20160321, end: 20160327
  2. VOLTAREN [Suspect]
     Active Substance: DICLOFENAC SODIUM
     Dosage: POSOLOGIA: 1 AMPOLA/DIA.
     Route: 030
     Dates: start: 20160321, end: 20160327
  3. RELMUS [Concomitant]
     Active Substance: THIOCOLCHICOSIDE
     Indication: INTERVERTEBRAL DISC PROTRUSION
     Dosage: 1 DF, QD
     Route: 030
     Dates: start: 20160321, end: 20160327
  4. VOLTAREN [Suspect]
     Active Substance: DICLOFENAC SODIUM
     Indication: INTERVERTEBRAL DISC PROTRUSION
     Dosage: 1 AMPOULE/ DAY
     Route: 030
     Dates: start: 20160321, end: 20160327

REACTIONS (7)
  - Gait disturbance [Recovered/Resolved with Sequelae]
  - Wound [Recovered/Resolved with Sequelae]
  - Injection site haematoma [Recovered/Resolved with Sequelae]
  - Injection site ulcer [Recovered/Resolved with Sequelae]
  - Injection site necrosis [Recovered/Resolved with Sequelae]
  - Injection site swelling [Recovered/Resolved with Sequelae]
  - Injection site pain [Recovered/Resolved with Sequelae]

NARRATIVE: CASE EVENT DATE: 20160324
